FAERS Safety Report 5168066-1 (Version None)
Quarter: 2006Q4

REPORT INFORMATION
  Report Type: 
  Country: None (occurrence: None)
  Receive Date: 20061208
  Receipt Date: 20060808
  Transmission Date: 20070319
  Serious: Yes (Hospitalization)
  Sender: FDA-Public Use
  Company Number: US-GLAXOSMITHKLINE-A0615766A

PATIENT
  Age: 64 Year
  Sex: Female

DRUGS (5)
  1. AVANDAMET [Suspect]
     Route: 048
     Dates: end: 20060601
  2. ZOSYN [Suspect]
     Indication: INFECTED SKIN ULCER
     Route: 042
     Dates: start: 20060101, end: 20060623
  3. LASIX [Concomitant]
  4. HYZAAR [Concomitant]
  5. ANTIBIOTICS [Concomitant]

REACTIONS (2)
  - CARDIAC FAILURE CONGESTIVE [None]
  - FLUID RETENTION [None]
